FAERS Safety Report 25850605 (Version 2)
Quarter: 2025Q4

REPORT INFORMATION
  Report Type: Report from Study
  Country: EU (occurrence: EU)
  Receive Date: 20250926
  Receipt Date: 20251123
  Transmission Date: 20260118
  Serious: Yes (Other)
  Sender: JOHNSON AND JOHNSON
  Company Number: EU-JNJFOC-20250939758

PATIENT
  Age: 62 Year
  Sex: Female

DRUGS (2)
  1. ESKETAMINE [Suspect]
     Active Substance: ESKETAMINE
     Indication: Depression
     Dosage: 56 MG (2 DEVICES), 2 DOSES
     Route: 045
     Dates: start: 20240328, end: 20240402
  2. ESKETAMINE [Suspect]
     Active Substance: ESKETAMINE
     Dosage: 84 MG (3 DEVICES), 32 DOSES (09-APR-2024, 11-APR-2024, 16-APR-2024, 18-APR-2024, 23-APR-2024, 25-APR
     Route: 045
     Dates: start: 20240404, end: 20250902

REACTIONS (1)
  - Thrombosis [Recovered/Resolved]

NARRATIVE: CASE EVENT DATE: 20250913
